FAERS Safety Report 7817494-1 (Version None)
Quarter: 2011Q4

REPORT INFORMATION
  Report Type: 
  Country: None (occurrence: None)
  Receive Date: 20111017
  Receipt Date: 20111004
  Transmission Date: 20120403
  Serious: Yes (Other)
  Sender: FDA-Public Use
  Company Number: US-ROCHE-785833

PATIENT
  Sex: Male
  Weight: 83.99 kg

DRUGS (3)
  1. EFFEXOR XR [Concomitant]
     Dates: start: 19971024
  2. ACCUTANE [Suspect]
     Indication: ACNE
     Route: 065
     Dates: start: 20020321, end: 20020915
  3. IMIPRAMINE [Concomitant]
     Dates: start: 19971023

REACTIONS (7)
  - DEPRESSION [None]
  - CROHN'S DISEASE [None]
  - COLITIS ULCERATIVE [None]
  - IRRITABLE BOWEL SYNDROME [None]
  - PANIC ATTACK [None]
  - INFLAMMATORY BOWEL DISEASE [None]
  - COLONIC POLYP [None]
